FAERS Safety Report 4837292-0 (Version None)
Quarter: 2005Q4

REPORT INFORMATION
  Report Type: 
  Country: None (occurrence: None)
  Receive Date: 20051122
  Receipt Date: 20051117
  Transmission Date: 20060501
  Serious: Yes (Death)
  Sender: FDA-Public Use
  Company Number: A044-002-005838

PATIENT
  Age: 73 Year
  Sex: Male

DRUGS (3)
  1. MEMAC (DONEPEZIL) (DONEPEZIL HYDROCHLORIDE) [Suspect]
     Indication: DEMENTIA ALZHEIMER'S TYPE
     Dosage: 5 MG, 1 IN 1 D, ORAL
     Route: 048
     Dates: start: 20050828, end: 20051025
  2. GABAPENTIN [Suspect]
     Indication: POLYNEUROPATHY
     Dosage: 300 MG, 1 IN 1 D, ORAL
     Route: 048
     Dates: start: 20040701, end: 20051025
  3. OMEPRAZOLE [Concomitant]

REACTIONS (8)
  - BLOOD PRESSURE IMMEASURABLE [None]
  - BRADYCARDIA [None]
  - CARDIO-RESPIRATORY ARREST [None]
  - COGNITIVE DETERIORATION [None]
  - COMA [None]
  - DRUG INTERACTION [None]
  - PARALYSIS FLACCID [None]
  - RESPIRATORY RATE DECREASED [None]
